FAERS Safety Report 6961175-3 (Version None)
Quarter: 2010Q3

REPORT INFORMATION
  Report Type: 
  Country: None (occurrence: None)
  Receive Date: 20100901
  Receipt Date: 20100820
  Transmission Date: 20110219
  Serious: Yes (Hospitalization)
  Sender: FDA-Public Use
  Company Number: AU-BRISTOL-MYERS SQUIBB COMPANY-14784854

PATIENT
  Age: 69 Year
  Sex: Male
  Weight: 83 kg

DRUGS (5)
  1. BRIVANIB ALANINATE [Suspect]
     Indication: COLORECTAL CANCER METASTATIC
     Dosage: INTERRUPTED ON 23SEP09;NO.OF WEEKS ON TREATMENT:3 04SEP09 TO 18SEP09
     Route: 048
     Dates: start: 20090904, end: 20090918
  2. CETUXIMAB [Suspect]
     Indication: COLORECTAL CANCER METASTATIC
     Dosage: NO OF WKS ON TREATMENT:3; 04SEP09 800MG WKLY,INTPTED ON 11SEP09 500MG WKLY(LAST INFUSION ALSO)
     Route: 042
     Dates: start: 20090904, end: 20090911
  3. PLACEBO [Suspect]
     Indication: COLORECTAL CANCER METASTATIC
     Dosage: INTERRUPTED ON 18SEP09,23SEP2009
     Route: 048
     Dates: start: 20090904, end: 20090901
  4. OXYCONTIN [Concomitant]
     Dates: start: 20090918
  5. ENDONE [Concomitant]
     Dates: start: 20090918

REACTIONS (1)
  - ATRIAL FIBRILLATION [None]
